FAERS Safety Report 16531723 (Version 1)
Quarter: 2019Q3

REPORT INFORMATION
  Report Type: Spontaneous
  Country: DE (occurrence: DE)
  Receive Date: 20190705
  Receipt Date: 20190705
  Transmission Date: 20191004
  Serious: Yes (Other)
  Sender: FDA-Public Use
  Company Number: DE-PFIZER INC-2019281795

PATIENT
  Age: 33 Year
  Sex: Male

DRUGS (5)
  1. VANCOMYCIN [Suspect]
     Active Substance: VANCOMYCIN
     Indication: ORCHITIS NONINFECTIVE
  2. ORFIRIL [Interacting]
     Active Substance: VALPROATE SODIUM
     Indication: EPILEPSY
     Dosage: 300 MG, 2X/DAY (300 MG - 0 - 300 MG)
  3. AUGMENTAN [AMOXICILLIN SODIUM;CLAVULANATE POTASSIUM] [Interacting]
     Active Substance: AMOXICILLIN\CLAVULANATE POTASSIUM
     Indication: ORCHITIS NONINFECTIVE
  4. CIPROFLOXACIN. [Interacting]
     Active Substance: CIPROFLOXACIN
     Indication: ORCHITIS NONINFECTIVE
  5. OSPOLOT [Concomitant]
     Active Substance: SULTHIAME
     Indication: EPILEPSY

REACTIONS (3)
  - Drug interaction [Unknown]
  - Therapeutic product effect decreased [Unknown]
  - Seizure [Unknown]
